FAERS Safety Report 4650956-7 (Version None)
Quarter: 2005Q2

REPORT INFORMATION
  Report Type: 
  Country: None (occurrence: None)
  Receive Date: 20050427
  Receipt Date: 20050415
  Transmission Date: 20051028
  Serious: Yes (Disabling)
  Sender: FDA-Public Use
  Company Number: 200308609

PATIENT
  Age: 61 Year
  Sex: Male
  Weight: 79.3795 kg

DRUGS (21)
  1. GAMMAR-P I.V. [Suspect]
     Indication: MULTIPLE SCLEROSIS
     Dosage: SEE IMAGE
     Route: 042
     Dates: start: 20000814, end: 20000816
  2. GAMMAR-P I.V. [Suspect]
     Indication: MULTIPLE SCLEROSIS
     Dosage: SEE IMAGE
     Route: 042
     Dates: start: 20000901, end: 20000901
  3. GAMMAR-P I.V. [Suspect]
     Indication: MULTIPLE SCLEROSIS
     Dosage: SEE IMAGE
     Route: 042
     Dates: start: 20001001, end: 20001001
  4. GAMMAR-P I.V. [Suspect]
     Indication: MULTIPLE SCLEROSIS
     Dosage: SEE IMAGE
     Route: 042
     Dates: start: 20001101, end: 20001101
  5. GAMMAR-P I.V. [Suspect]
     Indication: MULTIPLE SCLEROSIS
     Dosage: SEE IMAGE
     Route: 042
     Dates: start: 20010104, end: 20010106
  6. GAMMAR-P I.V. [Suspect]
     Indication: MULTIPLE SCLEROSIS
     Dosage: SEE IMAGE
     Route: 042
     Dates: start: 20010205, end: 20010207
  7. GAMMAR-P I.V. [Suspect]
     Indication: MULTIPLE SCLEROSIS
     Dosage: SEE IMAGE
     Route: 042
     Dates: start: 20010514, end: 20010516
  8. GAMMAR-P I.V. [Suspect]
     Indication: MULTIPLE SCLEROSIS
     Dosage: SEE IMAGE
     Route: 042
     Dates: start: 20020814, end: 20020816
  9. GAMMAR-P I.V. [Suspect]
     Indication: MULTIPLE SCLEROSIS
     Dosage: SEE IMAGE
     Route: 042
     Dates: start: 20021111, end: 20021113
  10. GAMMAR-P I.V. [Suspect]
     Indication: MULTIPLE SCLEROSIS
     Dosage: SEE IMAGE
     Route: 042
     Dates: start: 20021111, end: 20021113
  11. GAMMAR-P I.V. [Suspect]
  12. BUSPAR [Concomitant]
  13. ZYPREXA [Concomitant]
  14. PROZAC [Concomitant]
  15. NEURONTIN [Concomitant]
  16. PLAVIX [Concomitant]
  17. SERZONE [Concomitant]
  18. CLONAZEPAM [Concomitant]
  19. CYTOTEC [Concomitant]
  20. DICLOPHEN [Concomitant]
  21. BETASERON [Concomitant]

REACTIONS (7)
  - ARTERIAL OCCLUSIVE DISEASE [None]
  - CHEST DISCOMFORT [None]
  - CHEST PAIN [None]
  - INFUSION RELATED REACTION [None]
  - PAIN [None]
  - PAIN OF SKIN [None]
  - RASH SCALY [None]
